FAERS Safety Report 8765709 (Version 4)
Quarter: 2013Q2

REPORT INFORMATION
  Report Type: Report from Study
  Country: US (occurrence: US)
  Receive Date: 20120903
  Receipt Date: 20130603
  Transmission Date: 20140414
  Serious: Yes (Disabling, Other)
  Sender: FDA-Public Use
  Company Number: PHEH2012US011395

PATIENT
  Sex: Female
  Weight: 63.49 kg

DRUGS (13)
  1. GILENYA [Suspect]
     Indication: MULTIPLE SCLEROSIS
     Dosage: 0.5 MG, QD
     Route: 048
     Dates: start: 20111007
  2. GILENYA [Suspect]
     Dosage: 0.5 MG, QD
     Route: 048
     Dates: start: 20120405, end: 20120710
  3. GILENYA [Suspect]
     Dosage: 0.5 MG, QOD
     Route: 048
  4. GILENYA [Suspect]
     Dosage: 0.5 MG, Q72H
     Route: 048
  5. LYRICA [Concomitant]
     Dosage: 100 MG, QD
     Route: 048
  6. CYMBALTA [Concomitant]
     Dosage: 30 MG, BID
     Route: 048
  7. NABUMETONE [Concomitant]
     Dosage: 500 MG, QD
     Route: 048
  8. NORFLEX [Concomitant]
     Dosage: 100 MG, UNK
     Route: 048
  9. CALCIUM [Concomitant]
     Dosage: 500 MG, UNK
     Route: 048
  10. VITAMIN D [Concomitant]
     Dosage: 2000 U, UNK
     Route: 048
  11. COQ10 [Concomitant]
     Dosage: UNK UKN, UNK
  12. VITAMIN B [Concomitant]
     Dosage: UNK UKN, UNK
  13. ORPHENADRINE CITRATE [Concomitant]
     Dosage: UNK UKN, UNK

REACTIONS (13)
  - Palpitations [Not Recovered/Not Resolved]
  - Multiple sclerosis relapse [Unknown]
  - Gait disturbance [Not Recovered/Not Resolved]
  - Coordination abnormal [Unknown]
  - Muscle spasms [Unknown]
  - Hypoaesthesia [Not Recovered/Not Resolved]
  - Paraesthesia [Not Recovered/Not Resolved]
  - Fungal infection [Recovered/Resolved]
  - Feeling hot [Unknown]
  - Neck pain [Unknown]
  - Pyrexia [Not Recovered/Not Resolved]
  - Myalgia [Unknown]
  - Inappropriate schedule of drug administration [Unknown]
